FAERS Safety Report 9853965 (Version 3)
Quarter: 2014Q1

REPORT INFORMATION
  Report Type: Spontaneous
  Country: US (occurrence: US)
  Receive Date: 20140129
  Receipt Date: 20140307
  Transmission Date: 20141002
  Serious: No
  Sender: FDA-Public Use
  Company Number: US-PFIZER INC-2013307200

PATIENT
  Age: 68 Year
  Sex: Female

DRUGS (61)
  1. ENBREL [Suspect]
     Dosage: UNK
  2. METHOTREXATE SODIUM [Suspect]
     Dosage: UNK
  3. TRAMADOL HCL [Suspect]
     Dosage: UNK
  4. AMPICILLIN [Suspect]
     Dosage: UNK
  5. CIPROFLOXACIN [Suspect]
     Dosage: UNK
  6. DOXYCYCLINE CALCIUM [Suspect]
     Dosage: UNK
  7. DOXYCYCLINE HYCLATE [Suspect]
     Dosage: UNK
  8. ERYTHROMYCIN [Suspect]
     Dosage: UNK
  9. GEODON [Suspect]
     Dosage: UNK
  10. POTASSIUM CHLORIDE [Suspect]
     Dosage: UNK
  11. SULFASALAZINE [Suspect]
     Dosage: UNK
  12. DILANTIN [Suspect]
     Dosage: UNK
  13. ACTIFED [Suspect]
     Dosage: UNK
  14. ARAVA [Suspect]
     Dosage: UNK
  15. COLCHICINE [Suspect]
     Dosage: UNK
  16. COMPAZINE [Suspect]
     Dosage: UNK
  17. CYCLOSPORIN [Suspect]
     Dosage: UNK
  18. DIAMOL [Suspect]
     Dosage: UNK
  19. DILAUDID [Suspect]
     Dosage: UNK
  20. DYAZIDE [Suspect]
     Dosage: UNK
  21. HEPATITIS B VACCINE [Suspect]
     Dosage: UNK
  22. IRON [Suspect]
     Dosage: UNK
  23. LASIX [Suspect]
     Dosage: UNK
  24. PLAQUENIL [Suspect]
     Dosage: UNK
  25. KEFLEX [Suspect]
     Dosage: UNK
  26. SUDAFED [Suspect]
     Dosage: UNK
  27. TRILEPTAL [Suspect]
     Dosage: UNK
  28. DIAMOX [Suspect]
     Dosage: UNK
  29. CYCLOSPORIN A [Suspect]
     Dosage: UNK
  30. KEFLEX [Suspect]
     Dosage: UNK
  31. DIAZIDE [Suspect]
     Dosage: UNK
  32. HYDRALAZINE HYDROCHLORIDE [Suspect]
     Dosage: UNK
  33. HUMIRA [Suspect]
     Dosage: UNK
  34. TOCILIZUMAB [Concomitant]
     Dosage: UNK
  35. TAMIFLU [Concomitant]
     Dosage: UNK
  36. MVI 3 [Concomitant]
     Dosage: UNK
  37. SYNTHROID [Concomitant]
     Dosage: UNK
  38. ZOLOFT [Concomitant]
     Dosage: UNK
  39. TYLENOL [Concomitant]
     Dosage: UNK
  40. LYRICA [Concomitant]
     Dosage: UNK
  41. SINGULAIR [Concomitant]
     Dosage: UNK
  42. NASOCORT [Concomitant]
     Dosage: UNK
  43. ADVAIR [Concomitant]
     Dosage: UNK
  44. LAMICTAL [Concomitant]
     Dosage: UNK
  45. RESTASIS [Concomitant]
     Dosage: UNK
  46. FOLIC ACID [Concomitant]
     Dosage: UNK
  47. PREVACID [Concomitant]
     Dosage: UNK
  48. REFRESH PLUS [Concomitant]
     Dosage: UNK
  49. VICODIN [Concomitant]
     Dosage: UNK
  50. ALBUTEROL [Concomitant]
     Dosage: UNK
  51. FOSAMAX [Concomitant]
     Dosage: UNK
  52. XANAX [Concomitant]
     Dosage: UNK
  53. ZYRTEC [Concomitant]
     Dosage: UNK
  54. CELEXA [Concomitant]
     Dosage: UNK
  55. FLEXERIL [Concomitant]
     Dosage: UNK
  56. VITAMIN D [Concomitant]
     Dosage: UNK
  57. SIMPONI [Concomitant]
     Dosage: UNK
  58. TAZACT [Concomitant]
     Dosage: UNK
  59. ANTIVERT [Concomitant]
     Dosage: UNK
  60. PHENERGAN [Concomitant]
     Dosage: UNK
  61. SYSTANE [Concomitant]
     Dosage: UNK

REACTIONS (1)
  - Drug hypersensitivity [Unknown]
